FAERS Safety Report 13545775 (Version 1)
Quarter: 2017Q2

REPORT INFORMATION
  Report Type: Spontaneous
  Country: US (occurrence: US)
  Receive Date: 20170515
  Receipt Date: 20170515
  Transmission Date: 20170830
  Serious: Yes (Hospitalization)
  Sender: FDA-Public Use
  Company Number: US-WARNER CHILCOTT-2016-001475

PATIENT
  Age: 73 Year
  Sex: Female

DRUGS (3)
  1. VITAMIN D [Concomitant]
     Active Substance: CHOLECALCIFEROL
  2. CALCIUM [Concomitant]
     Active Substance: CALCIUM
  3. RISEDRONATE [Suspect]
     Active Substance: RISEDRONATE SODIUM
     Dosage: 150 MG, ONCE A MONTH, TOOK FIRST DOSE
     Route: 048
     Dates: start: 20160701, end: 20160701

REACTIONS (11)
  - Dry mouth [Recovered/Resolved]
  - Decreased appetite [Recovered/Resolved]
  - Asthenia [Recovered/Resolved]
  - Nausea [Recovered/Resolved]
  - Oesophageal pain [Recovered/Resolved]
  - Discomfort [Recovered/Resolved]
  - Oesophageal disorder [Recovered/Resolved]
  - Influenza like illness [Recovered/Resolved]
  - Back pain [Recovered/Resolved]
  - Pain in jaw [Recovered/Resolved]
  - Pyrexia [Recovered/Resolved]

NARRATIVE: CASE EVENT DATE: 20160701
